FAERS Safety Report 24044271 (Version 3)
Quarter: 2024Q4

REPORT INFORMATION
  Report Type: Report from Study
  Country: US (occurrence: US)
  Receive Date: 20240703
  Receipt Date: 20241109
  Transmission Date: 20250115
  Serious: Yes (Other)
  Sender: ABBVIE
  Company Number: US-ABBVIE-5822235

PATIENT
  Age: 82 Year
  Sex: Male

DRUGS (1)
  1. VENCLEXTA [Suspect]
     Active Substance: VENETOCLAX
     Indication: Chronic lymphocytic leukaemia
     Dosage: UNIT DOSE: 400 MILLIGRAM
     Route: 048
     Dates: start: 202307

REACTIONS (9)
  - Atrial fibrillation [Not Recovered/Not Resolved]
  - Emotional disorder [Unknown]
  - Procedural pain [Unknown]
  - Pneumonia viral [Unknown]
  - Asthenia [Unknown]
  - Squamous cell carcinoma of skin [Not Recovered/Not Resolved]
  - Basal cell carcinoma [Unknown]
  - Loss of personal independence in daily activities [Unknown]
  - Fatigue [Unknown]

NARRATIVE: CASE EVENT DATE: 20240101
